FAERS Safety Report 5630759-7 (Version None)
Quarter: 2008Q1

REPORT INFORMATION
  Report Type: 
  Country: None (occurrence: None)
  Receive Date: 20080212
  Receipt Date: 20080131
  Transmission Date: 20080703
  Serious: Yes (Hospitalization)
  Sender: FDA-Public Use
  Company Number: 2008AL000573

PATIENT
  Age: 66 Year
  Sex: Male

DRUGS (11)
  1. GLYBURIDE [Suspect]
     Indication: TYPE 2 DIABETES MELLITUS
     Dosage: 7.5 MG; BID;
  2. DILTIAZEM [Concomitant]
  3. LOSARTAN POTASSIUM [Concomitant]
  4. CARVEDILOL [Concomitant]
  5. DIGOXIN [Concomitant]
  6. WARFARIN SODIUM [Concomitant]
  7. FUROSEMIDE [Concomitant]
  8. LISINOPRIL [Concomitant]
  9. CALCITRIOL [Concomitant]
  10. SEVELAMER [Concomitant]
  11. CALCIUM CARBONATE [Concomitant]

REACTIONS (12)
  - ASTHENIA [None]
  - BLOOD CREATINE INCREASED [None]
  - BLOOD UREA INCREASED [None]
  - CONFUSIONAL STATE [None]
  - DECREASED APPETITE [None]
  - DISORIENTATION [None]
  - HYPERHIDROSIS [None]
  - HYPOGLYCAEMIA [None]
  - INSOMNIA [None]
  - NIGHTMARE [None]
  - PYREXIA [None]
  - SLEEP TERROR [None]
